FAERS Safety Report 8101282-5 (Version None)
Quarter: 2012Q1

REPORT INFORMATION
  Report Type: 
  Country: None (occurrence: None)
  Receive Date: 20120129
  Receipt Date: 20110928
  Transmission Date: 20120608
  Serious: No
  Sender: FDA-Public Use
  Company Number: US-ABBOTT-11P-163-0859242-00

PATIENT
  Sex: Female
  Weight: 124.85 kg

DRUGS (10)
  1. LIPITOR [Concomitant]
     Indication: BLOOD CHOLESTEROL INCREASED
  2. ASPIRIN [Concomitant]
     Indication: CARDIOVASCULAR DISORDER
  3. LISINOPRIL [Concomitant]
     Indication: HYPERTENSION
  4. OMEPRAZOLE [Concomitant]
     Indication: GASTROOESOPHAGEAL REFLUX DISEASE
  5. HUMIRA [Suspect]
     Indication: PSORIATIC ARTHROPATHY
  6. ZOLOFT [Concomitant]
     Indication: DEPRESSION
  7. ASPIRIN [Concomitant]
     Indication: PROPHYLAXIS
  8. ATENOLOL [Concomitant]
     Indication: HYPERTENSION
  9. HUMIRA [Suspect]
     Indication: PSORIASIS
     Dates: start: 20110801
  10. LEXAPRO [Concomitant]
     Indication: DEPRESSION

REACTIONS (1)
  - ALOPECIA [None]
